FAERS Safety Report 5535505-3 (Version None)
Quarter: 2007Q4

REPORT INFORMATION
  Report Type: 
  Country: None (occurrence: None)
  Receive Date: 20071206
  Receipt Date: 20071130
  Transmission Date: 20080405
  Serious: Yes (Other)
  Sender: FDA-Public Use
  Company Number: FR-ROCHE-534310

PATIENT
  Age: 58 Year
  Sex: Male
  Weight: 67 kg

DRUGS (2)
  1. CAPECITABINE [Suspect]
     Indication: COLORECTAL CANCER
     Dosage: CUMMULATIVE DOSE REPORTED AS: 22400MG
     Route: 048
     Dates: start: 20060925
  2. OXALIPLATINE [Suspect]
     Indication: COLORECTAL CANCER
     Dosage: CUMMULATIVE DOSE REPORTED AS 264MG
     Route: 042
     Dates: start: 20060925

REACTIONS (1)
  - HYPERKALAEMIA [None]
